FAERS Safety Report 25285864 (Version 2)
Quarter: 2025Q2

REPORT INFORMATION
  Report Type: Spontaneous
  Country: CA (occurrence: CA)
  Receive Date: 20250509
  Receipt Date: 20250523
  Transmission Date: 20250717
  Serious: Yes (Other)
  Sender: CELLTRION
  Company Number: CA-CELLTRION INC.-2022CA022614

PATIENT

DRUGS (28)
  1. TRUXIMA [Suspect]
     Active Substance: RITUXIMAB-ABBS
     Indication: Rheumatoid arthritis
     Route: 042
     Dates: start: 20220707
  2. TRUXIMA [Suspect]
     Active Substance: RITUXIMAB-ABBS
     Route: 042
     Dates: start: 20220707
  3. TRUXIMA [Suspect]
     Active Substance: RITUXIMAB-ABBS
     Route: 042
     Dates: start: 20220707
  4. TRUXIMA [Suspect]
     Active Substance: RITUXIMAB-ABBS
     Route: 042
     Dates: start: 20220707
  5. PREDNISOLONE [Suspect]
     Active Substance: PREDNISOLONE
     Indication: Premedication
  6. METHYLPREDNISOLONE [Suspect]
     Active Substance: METHYLPREDNISOLONE
     Indication: Premedication
  7. TYLENOL [Concomitant]
     Active Substance: ACETAMINOPHEN
     Indication: Rheumatoid arthritis
  8. PREDNISONE [Concomitant]
     Active Substance: PREDNISONE
     Indication: Vasculitis
  9. LOSEC [Concomitant]
     Active Substance: OMEPRAZOLE
     Indication: Gastric ulcer
  10. LOSEC [Concomitant]
     Active Substance: OMEPRAZOLE
     Route: 048
  11. PERINDOPRIL [Concomitant]
     Active Substance: PERINDOPRIL
     Indication: Hypertension
  12. PERINDOPRIL [Concomitant]
     Active Substance: PERINDOPRIL
     Route: 048
  13. HYDROCHLOROTHIAZIDE [Concomitant]
     Active Substance: HYDROCHLOROTHIAZIDE
     Indication: Hypertension
  14. HYDROCHLOROTHIAZIDE [Concomitant]
     Active Substance: HYDROCHLOROTHIAZIDE
     Route: 048
  15. SYNTHROID [Concomitant]
     Active Substance: LEVOTHYROXINE SODIUM
     Indication: Hypothyroidism
  16. SYNTHROID [Concomitant]
     Active Substance: LEVOTHYROXINE SODIUM
     Route: 048
  17. ACETAMINOPHEN [Concomitant]
     Active Substance: ACETAMINOPHEN
     Indication: Premedication
     Route: 048
  18. BENADRYL [Concomitant]
     Active Substance: DIPHENHYDRAMINE HYDROCHLORIDE
     Indication: Premedication
     Route: 048
  19. SOLU-MEDROL [Concomitant]
     Active Substance: METHYLPREDNISOLONE SODIUM SUCCINATE
     Indication: Premedication
     Route: 042
  20. SOLU-MEDROL [Concomitant]
     Active Substance: METHYLPREDNISOLONE SODIUM SUCCINATE
     Route: 042
  21. TYLENOL EXTRA STRENGTH [Concomitant]
     Active Substance: ACETAMINOPHEN
  22. PREGABALIN [Concomitant]
     Active Substance: PREGABALIN
  23. VITAMIN B6 [Concomitant]
     Active Substance: PYRIDOXINE HYDROCHLORIDE
     Route: 048
  24. VIT E [TOCOPHEROL] [Concomitant]
     Route: 048
  25. CALCIUM [Concomitant]
     Active Substance: CALCIUM
     Route: 048
  26. FOLIC ACID [Concomitant]
     Active Substance: FOLIC ACID
     Route: 048
  27. SENOKOT [Concomitant]
     Active Substance: SENNOSIDES
     Route: 048
  28. SPIRIVA [Concomitant]
     Active Substance: TIOTROPIUM BROMIDE MONOHYDRATE

REACTIONS (14)
  - Cataract operation [Unknown]
  - Hypertension [Unknown]
  - Unevaluable event [Unknown]
  - Poor venous access [Unknown]
  - Blood pressure systolic increased [Unknown]
  - Pain in extremity [Unknown]
  - Systolic hypertension [Unknown]
  - Infusion site extravasation [Unknown]
  - Anxiety [Unknown]
  - Pain [Unknown]
  - Hypotension [Unknown]
  - Spinal osteoarthritis [Unknown]
  - Off label use [Unknown]
  - Drug effect less than expected [Unknown]

NARRATIVE: CASE EVENT DATE: 20230815
